FAERS Safety Report 13130552 (Version 2)
Quarter: 2017Q1

REPORT INFORMATION
  Report Type: Spontaneous
  Country: US (occurrence: US)
  Receive Date: 20170119
  Receipt Date: 20170320
  Transmission Date: 20170428
  Serious: Yes (Hospitalization)
  Sender: FDA-Public Use
  Company Number: US-PFIZER INC-2016439996

PATIENT
  Age: 73 Year
  Sex: Female

DRUGS (21)
  1. ZANAFLEX [Concomitant]
     Active Substance: TIZANIDINE HYDROCHLORIDE
     Indication: MUSCLE SPASMS
     Dosage: 2 MG, 3X/DAY
     Route: 048
     Dates: start: 20161101
  2. DESYREL [Concomitant]
     Active Substance: TRAZODONE HYDROCHLORIDE
     Dosage: 150 MG, 1X/DAY (AT BEDTIME)
     Route: 048
     Dates: start: 20161022
  3. ATROVENT HFA [Concomitant]
     Active Substance: IPRATROPIUM BROMIDE
     Dosage: UNK
     Route: 055
     Dates: start: 20160714
  4. NORCO [Concomitant]
     Active Substance: ACETAMINOPHEN\HYDROCODONE BITARTRATE
     Indication: NECK PAIN
     Dosage: 5 MG/325 MG 1/2-1 TABLET, BID AS NEEDED
     Route: 048
     Dates: start: 20161219
  5. TOPROL XL [Concomitant]
     Active Substance: METOPROLOL SUCCINATE
     Dosage: 25 MG, UNK
     Dates: start: 20161116
  6. KLONOPIN [Concomitant]
     Active Substance: CLONAZEPAM
     Indication: ANXIETY
     Dosage: 0.5 MG, AS NEEDED (3 THREE TIMES DAILY)
     Route: 048
     Dates: start: 20160915
  7. ZOFRAN [Concomitant]
     Active Substance: ONDANSETRON HYDROCHLORIDE
     Indication: NAUSEA
     Dosage: 4 MG, AS NEEDED (TAKE 1 UP TO 4 TIMES DAILY)
     Dates: start: 20160830
  8. LASIX [Concomitant]
     Active Substance: FUROSEMIDE
     Dosage: 20 MG, UNK
     Dates: start: 20161116
  9. FLU [Concomitant]
     Active Substance: INFLUENZA VIRUS VACCINE
     Indication: IMMUNISATION
     Dosage: UNK
     Dates: start: 20161017
  10. IMODIUM [Concomitant]
     Active Substance: LOPERAMIDE HYDROCHLORIDE
     Dosage: 4 MG (AFTER FIRST LOOSE STOOL) THEN TAKE ONE CAPSULE AFTER EACH NOT TO EXCEED 16 MG PER DAY
     Route: 048
     Dates: start: 20160915
  11. ALDACTONE [Concomitant]
     Active Substance: SPIRONOLACTONE
     Dosage: 25 MG, DAILY
     Route: 048
     Dates: start: 20161214
  12. CODEINE-BUTALBITAL-ASA-CAFF [Concomitant]
     Dosage: 1 DF, UP TO 4X/DAY (USE NO MORE THAN 2 DAYS PER WEEK)
     Route: 048
     Dates: start: 20161206
  13. ZESTRIL [Concomitant]
     Active Substance: LISINOPRIL
     Dosage: 20 MG, DAILY
     Route: 048
  14. PRINIVIL [Concomitant]
     Active Substance: LISINOPRIL
     Dosage: 20 MG, DAILY
     Route: 048
  15. PRINIVIL [Concomitant]
     Active Substance: LISINOPRIL
     Dosage: 2.5 MG, 2X/DAY
     Route: 048
     Dates: start: 20161214
  16. ALBUTEROL. [Concomitant]
     Active Substance: ALBUTEROL
     Indication: WHEEZING
     Dosage: INHALER 2 PUFFS INTO THE LUNGS EVERY 4 (FOUR) HOURS AS NEEDED
     Route: 055
     Dates: start: 20160511
  17. PROZAC [Concomitant]
     Active Substance: FLUOXETINE HYDROCHLORIDE
     Dosage: 20 MG, DAILY
     Route: 048
     Dates: start: 20160616
  18. DUONEB [Concomitant]
     Active Substance: ALBUTEROL SULFATE\IPRATROPIUM BROMIDE
     Indication: WHEEZING
     Dosage: 0.5 MG/3MG (2.5 MG BASE)/3 ML, TAKE 3 MLS BY NEBULIZATION EVERY 4 (FOUR) HOURS AS NEEDED
     Route: 055
     Dates: start: 20161123
  19. LYRICA [Suspect]
     Active Substance: PREGABALIN
     Indication: CERVICOGENIC HEADACHE
     Dosage: 200 MG, 2X/DAY
     Route: 048
     Dates: start: 20160908
  20. LYRICA [Suspect]
     Active Substance: PREGABALIN
     Dosage: 200 MG, 2X/DAY
     Route: 048
     Dates: start: 20161222
  21. ZANTAC [Concomitant]
     Active Substance: RANITIDINE HYDROCHLORIDE
     Dosage: 300 MG, 1X/DAY (NIGHTLY)
     Route: 048
     Dates: start: 20160802

REACTIONS (4)
  - Influenza [Unknown]
  - Malaise [Unknown]
  - Product use issue [Unknown]
  - Pneumonia [Unknown]

NARRATIVE: CASE EVENT DATE: 20160908
